FAERS Safety Report 19033951 (Version 1)
Quarter: 2021Q1

REPORT INFORMATION
  Report Type: Spontaneous
  Country: US (occurrence: US)
  Receive Date: 20210320
  Receipt Date: 20210320
  Transmission Date: 20210420
  Serious: Yes (Hospitalization, Other)
  Sender: FDA-Public Use
  Company Number: US-LEADINGPHARMA-US-2021LEALIT00095

PATIENT
  Age: 14 Year
  Sex: Female

DRUGS (5)
  1. ETHINYLESTRADIOL [Concomitant]
     Active Substance: ETHINYL ESTRADIOL
     Indication: ORAL CONTRACEPTION
     Route: 065
  2. METHYLPHENIDATE. [Concomitant]
     Active Substance: METHYLPHENIDATE
     Indication: ATTENTION DEFICIT HYPERACTIVITY DISORDER
     Route: 048
  3. GUANFACINE. [Suspect]
     Active Substance: GUANFACINE
     Indication: ATTENTION DEFICIT HYPERACTIVITY DISORDER
     Route: 048
  4. ISOTRETINOIN. [Concomitant]
     Active Substance: ISOTRETINOIN
     Indication: ACNE
     Route: 048
  5. GLYCOPYRROLATE TABLETS USP [Suspect]
     Active Substance: GLYCOPYRROLATE
     Indication: HYPERHIDROSIS
     Dosage: WIPES
     Route: 061

REACTIONS (8)
  - Toxicity to various agents [Recovered/Resolved]
  - Urinary hesitation [Recovered/Resolved]
  - Dysphonia [Recovered/Resolved]
  - Mydriasis [Recovered/Resolved]
  - Constipation [Recovered/Resolved]
  - Electrocardiogram QT prolonged [Recovered/Resolved]
  - Dry throat [Recovered/Resolved]
  - Tachycardia [Recovered/Resolved]
